FAERS Safety Report 9218595 (Version 1)
Quarter: 2013Q1

REPORT INFORMATION
  Report Type: Spontaneous
  Country: US (occurrence: None)
  Receive Date: 20120827
  Receipt Date: 20120827
  Transmission Date: 20140127
  Serious: No
  Sender: FDA-Public Use
  Company Number: 354328

PATIENT
  Sex: Female

DRUGS (1)
  1. VICTOZA (LIRAGLUTIDE) SOLUTION FOR INJECTION, 6MG/ML [Suspect]
     Indication: WEIGHT DECREASED
     Dosage: UNK, SUBCUTANEOUS
     Route: 058
     Dates: start: 201111

REACTIONS (2)
  - Injection site pain [None]
  - Injection site haematoma [None]
